FAERS Safety Report 13960042 (Version 1)
Quarter: 2017Q3

REPORT INFORMATION
  Report Type: Spontaneous
  Country: US (occurrence: US)
  Receive Date: 20170911
  Receipt Date: 20170911
  Transmission Date: 20171128
  Serious: Yes (Hospitalization)
  Sender: FDA-Public Use
  Company Number: US-ELI_LILLY_AND_COMPANY-US201709001890

PATIENT
  Sex: Male

DRUGS (3)
  1. HUMULIN R [Interacting]
     Active Substance: INSULIN HUMAN
     Dosage: 70 U, TID
     Route: 058
  2. LASIX [Interacting]
     Active Substance: FUROSEMIDE
     Indication: CARDIAC FAILURE
     Dosage: UNK, UNKNOWN
     Route: 065
  3. HUMULIN R [Suspect]
     Active Substance: INSULIN HUMAN
     Indication: TYPE 2 DIABETES MELLITUS
     Dosage: 70 U, TID
     Route: 058
     Dates: start: 2014

REACTIONS (4)
  - Drug ineffective [Unknown]
  - Cardiac failure [Unknown]
  - Blood glucose abnormal [Unknown]
  - Drug interaction [Unknown]
